FAERS Safety Report 4506468-4 (Version None)
Quarter: 2004Q4

REPORT INFORMATION
  Report Type: 
  Country: None (occurrence: None)
  Receive Date: 20041122
  Receipt Date: 20041117
  Transmission Date: 20050328
  Serious: Yes (Disabling)
  Sender: FDA-Public Use
  Company Number: 200413403EU

PATIENT
  Age: 48 Year
  Sex: Female

DRUGS (7)
  1. ARAVA [Suspect]
     Indication: PSORIATIC ARTHROPATHY
     Route: 048
     Dates: start: 20040910, end: 20040916
  2. PAMOL [Concomitant]
  3. DOLOL [Concomitant]
  4. RELIFEX [Concomitant]
  5. NORITREN [Concomitant]
  6. ALOPAM [Concomitant]
  7. NEXIUM [Concomitant]

REACTIONS (4)
  - EATING DISORDER [None]
  - GINGIVAL PAIN [None]
  - PAIN IN JAW [None]
  - TOOTHACHE [None]
